FAERS Safety Report 22395645 (Version 1)
Quarter: 2023Q2

REPORT INFORMATION
  Report Type: Spontaneous
  Country: US (occurrence: US)
  Receive Date: 20230601
  Receipt Date: 20230601
  Transmission Date: 20230722
  Serious: No
  Sender: FDA-Public Use
  Company Number: TU23-1150991

PATIENT
  Sex: Female

DRUGS (3)
  1. BOTOX COSMETIC [Suspect]
     Active Substance: ONABOTULINUMTOXINA
     Indication: Skin wrinkling
     Dosage: UNK, SINGLE
     Dates: start: 20230324, end: 20230324
  2. BOTOX COSMETIC [Suspect]
     Active Substance: ONABOTULINUMTOXINA
     Indication: Skin wrinkling
     Dosage: UNK, SINGLE
     Dates: start: 20230324, end: 20230324
  3. BOTOX COSMETIC [Suspect]
     Active Substance: ONABOTULINUMTOXINA
     Indication: Skin wrinkling
     Dosage: UNK, SINGLE
     Dates: start: 20230324, end: 20230324

REACTIONS (5)
  - Injection site discolouration [Unknown]
  - Multiple use of single-use product [Unknown]
  - Injection site erythema [Recovered/Resolved with Sequelae]
  - Injection site pruritus [Recovered/Resolved with Sequelae]
  - Injection site rash [Recovered/Resolved with Sequelae]

NARRATIVE: CASE EVENT DATE: 20230101
